FAERS Safety Report 10552635 (Version 2)
Quarter: 2014Q4

REPORT INFORMATION
  Report Type: Report from Study
  Country: US (occurrence: US)
  Receive Date: 20141029
  Receipt Date: 20141029
  Transmission Date: 20150529
  Serious: Yes (Other)
  Sender: FDA-Public Use
  Company Number: US-SA-2014SA125015

PATIENT
  Sex: Female

DRUGS (1)
  1. AUBAGIO [Suspect]
     Active Substance: TERIFLUNOMIDE
     Indication: MULTIPLE SCLEROSIS
     Route: 048
     Dates: start: 20140901

REACTIONS (6)
  - Dyspnoea [Unknown]
  - Cellulitis [Recovering/Resolving]
  - Skin warm [Unknown]
  - Erythema [Unknown]
  - Pyrexia [Unknown]
  - Influenza like illness [Unknown]
